FAERS Safety Report 16332888 (Version 4)
Quarter: 2019Q2

REPORT INFORMATION
  Report Type: Spontaneous
  Country: US (occurrence: US)
  Receive Date: 20190520
  Receipt Date: 20190620
  Transmission Date: 20190711
  Serious: No
  Sender: FDA-Public Use
  Company Number: US-PFIZER INC-2019209198

PATIENT
  Age: 60 Year
  Sex: Female
  Weight: 58 kg

DRUGS (4)
  1. RAPAMUNE [Suspect]
     Active Substance: SIROLIMUS
     Indication: LIVER TRANSPLANT
     Dosage: 1 MG, 2X/DAY
     Route: 048
     Dates: start: 20180818
  2. RAPAMUNE [Suspect]
     Active Substance: SIROLIMUS
     Dosage: 0.5 MG, 2X/DAY
     Route: 048
  3. RAPAMUNE [Suspect]
     Active Substance: SIROLIMUS
     Dosage: 1.5 MG, DAILY [TAKE 3 TABLETS (1.5MG TOTAL) BY MOUTH DAILY]
     Route: 048
     Dates: start: 20190606
  4. RAPAMUNE [Suspect]
     Active Substance: SIROLIMUS
     Dosage: UNK
     Route: 048

REACTIONS (6)
  - Product use issue [Unknown]
  - Off label use [Unknown]
  - Product use in unapproved indication [Unknown]
  - Headache [Recovering/Resolving]
  - Hepatic enzyme abnormal [Unknown]
  - Oral herpes [Recovered/Resolved]

NARRATIVE: CASE EVENT DATE: 2018
